FAERS Safety Report 15228391 (Version 3)
Quarter: 2018Q3

REPORT INFORMATION
  Report Type: Spontaneous
  Country: US (occurrence: US)
  Receive Date: 20180801
  Receipt Date: 20180806
  Transmission Date: 20181010
  Serious: No
  Sender: FDA-Public Use
  Company Number: US-BAYER-2018-141038

PATIENT
  Sex: Female

DRUGS (2)
  1. FINACEA [Suspect]
     Active Substance: AZELAIC ACID
     Dosage: UNK
  2. FINACEA [Suspect]
     Active Substance: AZELAIC ACID
     Dosage: UNK

REACTIONS (3)
  - Drug ineffective [None]
  - Maternal exposure during breast feeding [None]
  - Product physical consistency issue [None]
